FAERS Safety Report 11364547 (Version 1)
Quarter: 2015Q3

REPORT INFORMATION
  Report Type: Spontaneous
  Country: US (occurrence: US)
  Receive Date: 20150811
  Receipt Date: 20150811
  Transmission Date: 20151125
  Serious: Yes (Other)
  Sender: FDA-Public Use
  Company Number: US-PFIZER INC-2015267151

PATIENT
  Age: 36 Year
  Sex: Female

DRUGS (6)
  1. THIOPENTAL [Concomitant]
     Active Substance: THIOPENTAL
     Indication: ANAESTHESIA
     Dosage: 100 MG, UNK
  2. ISOPROTERENOL /00006301/ [Concomitant]
     Active Substance: ISOPROTERENOL
     Indication: BLOOD PRESSURE MEASUREMENT
     Dosage: UNK
  3. DIAZEPAM. [Concomitant]
     Active Substance: DIAZEPAM
     Indication: ANAESTHESIA
     Dosage: 5 MG, UNK
  4. SUCCINYLCHOLINE [Concomitant]
     Active Substance: SUCCINYLCHOLINE
     Indication: ANAESTHESIA
     Dosage: 1200 MG, UNK (0.2 % DRIP SOLUTION)
  5. LIDOCAINE. [Concomitant]
     Active Substance: LIDOCAINE
     Dosage: UNK
     Route: 042
  6. MORPHINE SULFATE. [Suspect]
     Active Substance: MORPHINE SULFATE
     Indication: ANAESTHESIA
     Dosage: 60 MG, UNK

REACTIONS (2)
  - Unresponsive to stimuli [Recovered/Resolved]
  - Hemiparesis [Recovered/Resolved]
